FAERS Safety Report 5287519-9 (Version None)
Quarter: 2007Q1

REPORT INFORMATION
  Report Type: 
  Country: None (occurrence: None)
  Receive Date: 20070116
  Receipt Date: 20061004
  Transmission Date: 20070707
  Serious: No
  Sender: FDA-Public Use
  Company Number: 2006SP003540

PATIENT
  Sex: Male
  Weight: 79.3795 kg

DRUGS (7)
  1. LUNESTA [Suspect]
     Indication: INSOMNIA
     Dosage: 3 MG;ORAL
     Route: 048
     Dates: start: 20060920
  2. GALANTAMINE HYDROBROMIDE [Concomitant]
  3. VALSARTAN [Concomitant]
  4. LASIX [Concomitant]
  5. DIGOXIN [Concomitant]
  6. ACETYLSALICYLIC ACID SRT [Concomitant]
  7. REMERON [Concomitant]

REACTIONS (1)
  - INITIAL INSOMNIA [None]
